FAERS Safety Report 9059625 (Version 1)
Quarter: 2013Q2

REPORT INFORMATION
  Report Type: Spontaneous
  Country: US (occurrence: None)
  Receive Date: 20130206
  Receipt Date: 20130206
  Transmission Date: 20140414
  Serious: Yes (Hospitalization)
  Sender: FDA-Public Use
  Company Number: None

PATIENT
  Age: 68 Year
  Sex: Male

DRUGS (1)
  1. MIDOSTAURIN [Suspect]
     Indication: SYSTEMIC MASTOCYTOSIS
     Route: 048
     Dates: start: 20130117

REACTIONS (1)
  - Cerebrovascular accident [None]
